FAERS Safety Report 9378523 (Version 2)
Quarter: 2013Q3

REPORT INFORMATION
  Report Type: Spontaneous
  Country: HK (occurrence: HK)
  Receive Date: 20130702
  Receipt Date: 20130910
  Transmission Date: 20140515
  Serious: Yes (Death, Hospitalization)
  Sender: FDA-Public Use
  Company Number: HK-AMGEN-HKGSP2013045920

PATIENT
  Age: 40 Year
  Sex: Female

DRUGS (1)
  1. XGEVA [Suspect]
     Indication: PRODUCT USED FOR UNKNOWN INDICATION
     Dosage: 120MG UNKNOWN
     Route: 065

REACTIONS (2)
  - Death [Fatal]
  - Hypocalcaemia [Not Recovered/Not Resolved]
